FAERS Safety Report 19792249 (Version 1)
Quarter: 2021Q3

REPORT INFORMATION
  Report Type: Spontaneous
  Country: JP (occurrence: JP)
  Receive Date: 20210906
  Receipt Date: 20210906
  Transmission Date: 20211014
  Serious: Yes (Disabling, Other)
  Sender: FDA-Public Use
  Company Number: JP-GLAXOSMITHKLINE-JP2021JPN187578

PATIENT
  Age: 54 Year
  Sex: Female
  Weight: 55 kg

DRUGS (12)
  1. BENLYSTA [Suspect]
     Active Substance: BELIMUMAB
     Dosage: 10 MG/KG, ONCE EVERY 2 WEEKS
     Route: 041
     Dates: start: 20180719, end: 20180806
  2. BENLYSTA [Suspect]
     Active Substance: BELIMUMAB
     Dosage: 10 MG/KG
     Route: 041
     Dates: start: 20180806, end: 20181126
  3. BONALON ORAL JELLY [Concomitant]
     Indication: PROPHYLAXIS
  4. PREDONINE [Suspect]
     Active Substance: PREDNISOLONE
     Indication: SYSTEMIC LUPUS ERYTHEMATOSUS
     Dosage: 5 MG
     Dates: start: 20180719, end: 20181126
  5. AMLODIPINE BESILATE [Concomitant]
     Active Substance: AMLODIPINE BESYLATE
  6. BENLYSTA [Suspect]
     Active Substance: BELIMUMAB
     Indication: SYSTEMIC LUPUS ERYTHEMATOSUS
     Dosage: UNK
     Route: 041
     Dates: start: 20180704
  7. PREDONINE [Suspect]
     Active Substance: PREDNISOLONE
     Dosage: 5 MG
     Dates: end: 20190701
  8. TACROLIMUS CAPSULE [Concomitant]
     Active Substance: TACROLIMUS
     Indication: SYSTEMIC LUPUS ERYTHEMATOSUS
  9. DAIPHEN COMBINATION TABLETS [Concomitant]
     Indication: PROPHYLAXIS
  10. TAKECAB [Concomitant]
     Active Substance: VONOPRAZAN FUMARATE
     Indication: PROPHYLAXIS
  11. BENLYSTA [Suspect]
     Active Substance: BELIMUMAB
     Dosage: 10 MG/KG, ONCE EVERY 4 WEEKS
     Route: 041
     Dates: start: 20190204, end: 20190603
  12. EDIROL [Concomitant]
     Active Substance: ELDECALCITOL
     Indication: PROPHYLAXIS

REACTIONS (2)
  - Osteonecrosis [Recovered/Resolved with Sequelae]
  - Nasopharyngitis [Unknown]

NARRATIVE: CASE EVENT DATE: 20190719
